FAERS Safety Report 6566080-2 (Version None)
Quarter: 2010Q1

REPORT INFORMATION
  Report Type: 
  Country: None (occurrence: None)
  Receive Date: 20100202
  Receipt Date: 20100125
  Transmission Date: 20100710
  Serious: Yes (Other)
  Sender: FDA-Public Use
  Company Number: US-RB-001841-10

PATIENT
  Age: 14 Year
  Sex: Male

DRUGS (1)
  1. MUCINEX CHILDREN'S MIXED BERRY [Suspect]
     Dosage: 2 TEASPOONS TAKEN 3.5 HOURS AGO
     Route: 048
     Dates: start: 20100125

REACTIONS (1)
  - EYE SWELLING [None]
